FAERS Safety Report 10006053 (Version 3)
Quarter: 2014Q2

REPORT INFORMATION
  Report Type: Spontaneous
  Country: US (occurrence: US)
  Receive Date: 20140313
  Receipt Date: 20140424
  Transmission Date: 20141212
  Serious: Yes (Life-Threatening, Hospitalization, Other)
  Sender: FDA-Public Use
  Company Number: US-JNJFOC-20140306527

PATIENT
  Age: 70 Year
  Sex: Male
  Weight: 118.84 kg

DRUGS (14)
  1. XARELTO [Suspect]
     Indication: THROMBOSIS PROPHYLAXIS
     Route: 048
     Dates: start: 20131109, end: 20131115
  2. XARELTO [Suspect]
     Indication: HIP ARTHROPLASTY
     Route: 048
     Dates: start: 20131109, end: 20131115
  3. AMITRIPTYLINE/CHLORDIAZEPOXIDE [Concomitant]
     Dosage: 25-10 MG
     Route: 065
  4. AMLODIPINE [Concomitant]
     Route: 065
  5. BUSPIRONE [Concomitant]
     Route: 065
  6. DIOVAN [Concomitant]
     Route: 065
  7. FUROSEMIDE [Concomitant]
     Route: 065
  8. LEXAPRO [Concomitant]
     Route: 065
  9. NORCO [Concomitant]
     Indication: PROCEDURAL PAIN
     Dosage: 7.5/325MG
     Route: 065
  10. METOPROLOL [Concomitant]
     Route: 065
  11. OMEPRAZOLE [Concomitant]
     Route: 065
  12. POTASSIUM [Concomitant]
     Route: 065
  13. DIAZEPAM [Concomitant]
     Route: 065
  14. CO-Q10 [Concomitant]
     Route: 065

REACTIONS (2)
  - Hypoglycaemic coma [Recovered/Resolved]
  - Insulinoma [Unknown]
